FAERS Safety Report 4507584-3 (Version None)
Quarter: 2004Q4

REPORT INFORMATION
  Report Type: 
  Country: None (occurrence: None)
  Receive Date: 20041123
  Receipt Date: 20040921
  Transmission Date: 20050328
  Serious: Yes (Death, Hospitalization)
  Sender: FDA-Public Use
  Company Number: 200412856EU

PATIENT
  Age: 49 Year
  Sex: Female

DRUGS (4)
  1. DOCETAXEL [Suspect]
     Indication: BREAST CANCER METASTATIC
     Route: 042
     Dates: start: 20040730, end: 20040830
  2. FLUOROURACIL [Concomitant]
     Indication: BREAST CANCER METASTATIC
     Dates: end: 20040101
  3. ADRIAMYCIN PFS [Concomitant]
     Indication: BREAST CANCER METASTATIC
     Dates: end: 20040101
  4. CYCLOPHOSPHAMIDE [Concomitant]
     Indication: BREAST CANCER METASTATIC
     Dates: end: 20040101

REACTIONS (17)
  - ASCITES [None]
  - ASPIRATION [None]
  - COAGULOPATHY [None]
  - DIALYSIS [None]
  - DISEASE PROGRESSION [None]
  - DRUG TOXICITY [None]
  - ERYTHEMA [None]
  - FEBRILE NEUTROPENIA [None]
  - HEPATIC CIRRHOSIS [None]
  - MUCOSAL INFLAMMATION [None]
  - NEUROPATHIC PAIN [None]
  - PAIN IN EXTREMITY [None]
  - PSORIASIS [None]
  - RENAL FAILURE [None]
  - SKIN NECROSIS [None]
  - SKIN ULCER [None]
  - STAPHYLOCOCCAL INFECTION [None]
